FAERS Safety Report 8653488 (Version 2)
Quarter: 2013Q4

REPORT INFORMATION
  Report Type: Spontaneous
  Country: US (occurrence: None)
  Receive Date: 20120620
  Receipt Date: 20131120
  Transmission Date: 20140711
  Serious: Yes (Hospitalization)
  Sender: FDA-Public Use
  Company Number: ACO_30670_2012

PATIENT
  Age: 57 Year
  Sex: Female

DRUGS (16)
  1. AMPYRA [Suspect]
     Indication: GAIT DISTURBANCE
     Dosage: 10 MG, BID, ORAL
     Route: 048
     Dates: start: 2003
  2. AVONEX [Concomitant]
  3. THEODUR (THEOPHYLIINE) [Concomitant]
  4. ADVAIR (FLUTICASONE PROPIONATEM SALMETEROL XINAFOATE) [Concomitant]
  5. CYMBALTA (DULOXETINE HYDROCHLORIDE) [Concomitant]
  6. VITAMIN B12 (CYANOCOBALMIN) [Concomitant]
  7. FOLIC ACID (FOLIC ACID) [Concomitant]
  8. FERROUS SULFATE (FERROUS SULFATE) [Concomitant]
  9. WARFARIN (WARFARIN_ [Concomitant]
  10. BACLOFEN (BACLOFEN) [Concomitant]
  11. LYRICA (PREGAMBLIN) [Concomitant]
  12. MISPPROSTOL (MISOPROSTOL) [Concomitant]
  13. DETROL LA (TOLTERODINE L-TARTRATE) [Concomitant]
  14. VITAMIN C (ASCORBIC ACID) [Concomitant]
  15. CALCIUM (CALCIUM) [Concomitant]
  16. LANTANPROST (LANTANPROST ) [Concomitant]

REACTIONS (3)
  - Fall [None]
  - Limb injury [None]
  - Encephalopathy [None]
